FAERS Safety Report 6660665-0 (Version None)
Quarter: 2010Q1

REPORT INFORMATION
  Report Type: 
  Country: None (occurrence: None)
  Receive Date: 20100331
  Receipt Date: 20100324
  Transmission Date: 20100710
  Serious: Yes (Death, Hospitalization, Other)
  Sender: FDA-Public Use
  Company Number: JP-BAYER-200911541BYL

PATIENT
  Age: 77 Year
  Sex: Male
  Weight: 51 kg

DRUGS (40)
  1. NEXAVAR [Suspect]
     Indication: RENAL CELL CARCINOMA
     Dosage: UNIT DOSE: 200 MG
     Route: 048
     Dates: start: 20080723, end: 20081105
  2. NEXAVAR [Suspect]
     Dosage: TOTAL DAILY DOSE: 400 MG  UNIT DOSE: 200 MG
     Route: 048
     Dates: start: 20081106, end: 20090412
  3. NEXAVAR [Suspect]
     Dosage: UNIT DOSE: 200 MG
     Route: 048
     Dates: start: 20090413, end: 20090422
  4. PENTAZOCINE LACTATE [Concomitant]
     Indication: THORACIC CAVITY DRAINAGE
     Route: 030
     Dates: start: 20080417, end: 20080417
  5. SENNOSIDE [Concomitant]
     Dosage: 12-24MG/DAY
     Route: 048
     Dates: start: 20080101
  6. CEPHADOL [Concomitant]
     Route: 048
     Dates: start: 20080101
  7. VEGIN [Concomitant]
     Indication: PALMAR-PLANTAR ERYTHRODYSAESTHESIA SYNDROME
     Route: 061
     Dates: start: 20080722
  8. ARGAMATE [Concomitant]
     Dosage: UNIT DOSE: 20 %
     Route: 048
     Dates: start: 20080806, end: 20080812
  9. ARGAMATE [Concomitant]
     Dosage: UNIT DOSE: 20 %
     Route: 048
     Dates: start: 20080919, end: 20081002
  10. ARGAMATE [Concomitant]
     Dosage: UNIT DOSE: 20 %
     Route: 048
     Dates: start: 20080731, end: 20080801
  11. MAGNESIUM OXIDE [Concomitant]
     Dosage: 0.5-1.5G/DAY
     Route: 048
     Dates: start: 20080804
  12. GLYSENNID [Concomitant]
     Dosage: 12-24MG/DAY
     Route: 048
     Dates: start: 20081112, end: 20090419
  13. HYPEN [Concomitant]
     Route: 048
     Dates: start: 20081118, end: 20090422
  14. SODIUM BICARBONATE [Concomitant]
     Route: 048
     Dates: start: 20081216, end: 20090110
  15. LASIX [Concomitant]
     Route: 042
     Dates: start: 20090411, end: 20090412
  16. LASIX [Concomitant]
     Route: 048
     Dates: start: 20081216
  17. LASIX [Concomitant]
     Route: 048
     Dates: start: 20090416, end: 20090422
  18. SOLITA-T NO.1 [Concomitant]
     Route: 041
     Dates: start: 20080422, end: 20080426
  19. SOLITA-T NO.1 [Concomitant]
     Route: 041
     Dates: start: 20080410, end: 20080412
  20. KENEI G [Concomitant]
     Route: 054
     Dates: start: 20090412, end: 20090417
  21. RINDERON [Concomitant]
     Route: 042
     Dates: start: 20080422, end: 20080426
  22. RINDERON [Concomitant]
     Dosage: 1-2MG/DAY
     Route: 048
     Dates: start: 20090415, end: 20090422
  23. RINDERON [Concomitant]
     Route: 065
     Dates: start: 20080421, end: 20080421
  24. ATARAX [Concomitant]
     Indication: THORACIC CAVITY DRAINAGE
     Route: 030
     Dates: start: 20080416, end: 20080416
  25. XYLOCAINE [Concomitant]
     Route: 065
     Dates: start: 20080417
  26. XYLOCAINE [Concomitant]
     Route: 065
     Dates: start: 20080421, end: 20080421
  27. HUMULIN R [Concomitant]
     Route: 042
     Dates: start: 20081212, end: 20081215
  28. HUMULIN R [Concomitant]
     Route: 042
     Dates: start: 20081216, end: 20081218
  29. HUMULIN R [Concomitant]
     Route: 042
     Dates: start: 20080420, end: 20080421
  30. GLUCOSE [Concomitant]
     Dosage: UNIT DOSE: 10 %
     Route: 041
     Dates: start: 20081216, end: 20081218
  31. GLUCOSE [Concomitant]
     Dosage: UNIT DOSE: 10 %
     Route: 041
     Dates: start: 20081212, end: 20081215
  32. GLUCOSE [Concomitant]
     Dosage: UNIT DOSE: 10 %
     Route: 041
     Dates: start: 20080420, end: 20080421
  33. CALCICOL [Concomitant]
     Dosage: UNIT DOSE: 8.5 %
     Route: 042
     Dates: start: 20080420, end: 20080420
  34. ISOTONIC SODIUM CHLORIDE SOLUTION [Concomitant]
     Dosage: SOLUTION
     Route: 042
     Dates: start: 20080420, end: 20080420
  35. MEYLON [Concomitant]
     Dosage: UNIT DOSE: 7 %
     Route: 042
     Dates: start: 20080420, end: 20080421
  36. ROHYPNOL [Concomitant]
     Route: 048
     Dates: start: 20080421, end: 20080425
  37. LECICARBON [Concomitant]
     Route: 054
     Dates: start: 20090422, end: 20090422
  38. CANDESARTAN CILEXETIL [Concomitant]
     Route: 048
     Dates: start: 20080818, end: 20090416
  39. PL [Concomitant]
     Indication: NASOPHARYNGITIS
     Route: 048
     Dates: start: 20081010, end: 20081012
  40. KAYEXALATE [Concomitant]
     Route: 054
     Dates: start: 20081212, end: 20081215

REACTIONS (12)
  - COUGH [None]
  - DIARRHOEA [None]
  - DYSPEPSIA [None]
  - FATIGUE [None]
  - HAEMOGLOBIN DECREASED [None]
  - HYPERTENSION [None]
  - HYPOALBUMINAEMIA [None]
  - HYPOTHYROIDISM [None]
  - INSOMNIA [None]
  - PALMAR-PLANTAR ERYTHRODYSAESTHESIA SYNDROME [None]
  - PLEURAL EFFUSION [None]
  - RENAL CELL CARCINOMA [None]
